FAERS Safety Report 24929461 (Version 1)
Quarter: 2025Q1

REPORT INFORMATION
  Report Type: Spontaneous
  Country: CZ (occurrence: CZ)
  Receive Date: 20250205
  Receipt Date: 20250205
  Transmission Date: 20250409
  Serious: Yes (Death, Life-Threatening, Hospitalization, Disabling, Other)
  Sender: ABBVIE
  Company Number: None

PATIENT
  Age: 73 Year
  Sex: Male
  Weight: 72 kg

DRUGS (1)
  1. IMBRUVICA [Suspect]
     Active Substance: IBRUTINIB
     Indication: Non-Hodgkin^s lymphoma
     Dosage: IMBRUVICA 140 MG 0-0-3
     Route: 048
     Dates: start: 20241122, end: 202501

REACTIONS (2)
  - Multiple organ dysfunction syndrome [Fatal]
  - Pneumonia [Fatal]

NARRATIVE: CASE EVENT DATE: 20250103
